FAERS Safety Report 16716540 (Version 2)
Quarter: 2019Q3

REPORT INFORMATION
  Report Type: Report from Study
  Country: GB (occurrence: GB)
  Receive Date: 20190819
  Receipt Date: 20190827
  Transmission Date: 20191005
  Serious: Yes (Other)
  Sender: FDA-Public Use
  Company Number: GB-PFIZER INC-2019346878

PATIENT
  Age: 50 Year
  Sex: Female

DRUGS (13)
  1. WATER FOR INJECTION [Suspect]
     Active Substance: WATER
     Indication: PARENTERAL NUTRITION
     Route: 065
  2. CALCIUM CHLORIDE. [Suspect]
     Active Substance: CALCIUM CHLORIDE
     Indication: PARENTERAL NUTRITION
     Dosage: 1 MMOL/ML
     Route: 065
  3. SYNTHAMIN [Suspect]
     Active Substance: AMINO ACIDS
     Indication: PARENTERAL NUTRITION
     Route: 065
  4. MAGNESIUM SULPHATE [GLYCEROL;MAGNESIUM SULFATE;PHENOL] [Suspect]
     Active Substance: GLYCERIN\MAGNESIUM SULFATE\PHENOL
     Indication: PARENTERAL NUTRITION
     Dosage: BAG
     Route: 065
  5. BACTERIOSTATIC SODIUM CHLORIDE [Suspect]
     Active Substance: SODIUM CHLORIDE
     Indication: PARENTERAL NUTRITION
     Route: 065
  6. SODIUM GLYCEROPHOSPHATE [Suspect]
     Active Substance: SODIUM GLYCEROPHOSPHATE
     Indication: PARENTERAL NUTRITION
     Route: 065
  7. SODIUM SELENITE [Suspect]
     Active Substance: SODIUM SELENITE
     Indication: PARENTERAL NUTRITION
     Route: 065
  8. POTASSIUM CHLORIDE. [Suspect]
     Active Substance: POTASSIUM CHLORIDE
     Indication: PARENTERAL NUTRITION
     Route: 065
  9. WATER BACTERIOSTATIC [Suspect]
     Active Substance: WATER
     Indication: PARENTERAL NUTRITION
     Dosage: UNK
     Route: 065
  10. GLUCOSE 50% BAXTER [Suspect]
     Active Substance: DEXTROSE
     Indication: PARENTERAL NUTRITION
     Route: 065
  11. CERNEVIT [Suspect]
     Active Substance: VITAMINS
     Indication: PARENTERAL NUTRITION
     Route: 065
  12. ADDITRACE [Suspect]
     Active Substance: MINERALS
     Indication: PARENTERAL NUTRITION
     Route: 065
  13. ZINC SULFATE. [Suspect]
     Active Substance: ZINC SULFATE
     Indication: PARENTERAL NUTRITION
     Dosage: 50 UMOL/ML
     Route: 065

REACTIONS (2)
  - Presyncope [Unknown]
  - Seizure [Unknown]
